FAERS Safety Report 12223331 (Version 1)
Quarter: 2016Q1

REPORT INFORMATION
  Report Type: Spontaneous
  Country: CH (occurrence: CH)
  Receive Date: 20160330
  Receipt Date: 20160330
  Transmission Date: 20160526
  Serious: Yes (Hospitalization)
  Sender: FDA-Public Use
  Company Number: CH-JNJFOC-20160325316

PATIENT
  Age: 67 Year
  Sex: Female

DRUGS (9)
  1. CONCOR [Concomitant]
     Active Substance: BISOPROLOL FUMARATE
     Route: 048
  2. XARELTO [Suspect]
     Active Substance: RIVAROXABAN
     Indication: PRODUCT USED FOR UNKNOWN INDICATION
     Route: 048
     Dates: start: 20160114, end: 20160207
  3. XARELTO [Suspect]
     Active Substance: RIVAROXABAN
     Indication: PRODUCT USED FOR UNKNOWN INDICATION
     Route: 048
     Dates: start: 20160210, end: 20160211
  4. ACETYLSALICYLIC ACID [Suspect]
     Active Substance: ASPIRIN
     Indication: PRODUCT USED FOR UNKNOWN INDICATION
     Route: 048
     Dates: end: 20160207
  5. ATACAND [Concomitant]
     Active Substance: CANDESARTAN CILEXETIL
     Route: 065
     Dates: end: 20160207
  6. CRESTOR [Concomitant]
     Active Substance: ROSUVASTATIN CALCIUM
     Route: 048
  7. ACETYLSALICYLIC ACID [Suspect]
     Active Substance: ASPIRIN
     Indication: PRODUCT USED FOR UNKNOWN INDICATION
     Route: 048
     Dates: start: 20160208, end: 20160211
  8. PANTOZOL [Concomitant]
     Active Substance: PANTOPRAZOLE SODIUM
     Route: 048
  9. PANADOL [Concomitant]
     Active Substance: ACETAMINOPHEN
     Route: 065

REACTIONS (4)
  - Epistaxis [Recovered/Resolved]
  - Diverticulum intestinal haemorrhagic [Recovering/Resolving]
  - Abdominal pain lower [Recovering/Resolving]
  - Haematochezia [Recovered/Resolved]

NARRATIVE: CASE EVENT DATE: 20160207
